FAERS Safety Report 18707557 (Version 2)
Quarter: 2021Q1

REPORT INFORMATION
  Report Type: Spontaneous
  Country: DE (occurrence: DE)
  Receive Date: 20210106
  Receipt Date: 20210125
  Transmission Date: 20210419
  Serious: Yes (Life-Threatening, Hospitalization, Other)
  Sender: FDA-Public Use
  Company Number: DE-ASTRAZENECA-2020SF76177

PATIENT
  Age: 802 Month
  Sex: Male
  Weight: 93 kg

DRUGS (11)
  1. SIMVASTATIN. [Concomitant]
     Active Substance: SIMVASTATIN
  2. AMLODIPINE [Concomitant]
     Active Substance: AMLODIPINE BESYLATE
     Dosage: 5.0MG UNKNOWN
  3. ASPIRIN. [Concomitant]
     Active Substance: ASPIRIN
     Dosage: 100.0MG UNKNOWN
  4. BRILIQUE [Suspect]
     Active Substance: TICAGRELOR
     Indication: MYOCARDIAL INFARCTION
     Dosage: 90.0MG UNKNOWN
     Route: 048
  5. BISOPROLOL [Concomitant]
     Active Substance: BISOPROLOL
     Dosage: 2.5MG UNKNOWN
  6. BRILIQUE [Suspect]
     Active Substance: TICAGRELOR
     Indication: MYOCARDIAL INFARCTION
     Dosage: 180.0MG UNKNOWN
     Route: 048
  7. ATORVASTATIN [Concomitant]
     Active Substance: ATORVASTATIN
     Indication: MYOCARDIAL INFARCTION
     Dosage: 40.0MG UNKNOWN
  8. URAPIDIL [Concomitant]
     Active Substance: URAPIDIL
     Dosage: 60.0MG UNKNOWN
  9. VALSARTAN. [Concomitant]
     Active Substance: VALSARTAN
     Dosage: 80.0MG UNKNOWN
  10. FUROSEMIDE. [Concomitant]
     Active Substance: FUROSEMIDE
     Dosage: 40.0MG UNKNOWN
  11. ENOXAPARIN [Concomitant]
     Active Substance: ENOXAPARIN
     Dosage: 4,000 IU (40 MG) /0.4 ML SOLUTION FOR INJECTION

REACTIONS (18)
  - Thrombophlebitis [Unknown]
  - Myoglobin blood increased [Unknown]
  - Epistaxis [Not Recovered/Not Resolved]
  - Acute kidney injury [Not Recovered/Not Resolved]
  - Anaemia [Unknown]
  - Coronary artery disease [Unknown]
  - Proteinuria [Unknown]
  - Nephrocalcinosis [Unknown]
  - Ascites [Unknown]
  - Oedema [Unknown]
  - Unevaluable event [Unknown]
  - Thyroid cyst [Unknown]
  - Nephrotic syndrome [Unknown]
  - Renal disorder [Unknown]
  - Rhabdomyolysis [Not Recovered/Not Resolved]
  - Pneumonia [Unknown]
  - Blood creatine phosphokinase increased [Unknown]
  - Pleural effusion [Unknown]

NARRATIVE: CASE EVENT DATE: 202012
